FAERS Safety Report 16823665 (Version 7)
Quarter: 2020Q1

REPORT INFORMATION
  Report Type: Spontaneous
  Country: US (occurrence: US)
  Receive Date: 20190918
  Receipt Date: 20200106
  Transmission Date: 20200409
  Serious: Yes (Other)
  Sender: FDA-Public Use
  Company Number: US-SA-2019SA256199

PATIENT
  Age: 69 Year
  Sex: Female

DRUGS (34)
  1. DUPIXENT [Suspect]
     Active Substance: DUPILUMAB
     Indication: ASTHMA
     Dosage: 2 DF, UNK
     Route: 065
  2. ORENITRAM [Suspect]
     Active Substance: TREPROSTINIL
     Dosage: BEYOND 3.5 MG THREE TIMES DAILY
  3. SYNTHROID [Concomitant]
     Active Substance: LEVOTHYROXINE SODIUM
  4. CRESTOR [Concomitant]
     Active Substance: ROSUVASTATIN CALCIUM
  5. COLLAGEN [Concomitant]
     Active Substance: COLLAGEN
  6. OMEGA 3 [FISH OIL] [Concomitant]
     Active Substance: FISH OIL
  7. LASIX [Concomitant]
     Active Substance: FUROSEMIDE
  8. PROAIR [FLUTICASONE PROPIONATE] [Concomitant]
     Active Substance: FLUTICASONE PROPIONATE
  9. CALCIUM [Concomitant]
     Active Substance: CALCIUM
  10. MULTAQ [Concomitant]
     Active Substance: DRONEDARONE
  11. COENZYME Q10 [Concomitant]
     Active Substance: UBIDECARENONE
  12. PLAVIX [Concomitant]
     Active Substance: CLOPIDOGREL BISULFATE
  13. GARCINIA CAMBOGIA [GARCINIA GUMMI-GUTTA FRUIT] [Concomitant]
  14. ELIQUIS [Suspect]
     Active Substance: APIXABAN
     Dosage: UNK, UNK
  15. OPSUMIT [Concomitant]
     Active Substance: MACITENTAN
  16. DYMISTA [Concomitant]
     Active Substance: AZELASTINE HYDROCHLORIDE\FLUTICASONE PROPIONATE
  17. CARDIZEM [Concomitant]
     Active Substance: DILTIAZEM HYDROCHLORIDE
  18. LETROZOLE. [Concomitant]
     Active Substance: LETROZOLE
  19. GLUCOSAMINE [Concomitant]
     Active Substance: GLUCOSAMINE
  20. POTASSIUM [Concomitant]
     Active Substance: POTASSIUM
  21. RANEXA [Concomitant]
     Active Substance: RANOLAZINE
  22. SPIRONOLACTONE. [Concomitant]
     Active Substance: SPIRONOLACTONE
  23. XOLAIR [Concomitant]
     Active Substance: OMALIZUMAB
  24. ORENITRAM [Suspect]
     Active Substance: TREPROSTINIL
     Dosage: 3.5 MG, TID
  25. MULTIVITAMINS [VITAMINS NOS] [Concomitant]
     Active Substance: VITAMINS
  26. COZAAR [Concomitant]
     Active Substance: LOSARTAN POTASSIUM
  27. SYMBICORT [Concomitant]
     Active Substance: BUDESONIDE\FORMOTEROL FUMARATE DIHYDRATE
  28. RANITIDINE. [Concomitant]
     Active Substance: RANITIDINE
  29. GABAPENTIN. [Concomitant]
     Active Substance: GABAPENTIN
  30. SPIRIN [Concomitant]
  31. DUPIXENT [Suspect]
     Active Substance: DUPILUMAB
     Dosage: 300 MG, QOW
     Route: 058
     Dates: start: 20190801
  32. ADEMPAS [Concomitant]
     Active Substance: RIOCIGUAT
  33. FLUTICASONE. [Concomitant]
     Active Substance: FLUTICASONE
  34. ASPIRIN (E.C.) [Concomitant]
     Active Substance: ASPIRIN

REACTIONS (12)
  - Chest discomfort [Unknown]
  - Pulmonary arterial hypertension [Unknown]
  - Fatigue [Unknown]
  - Peripheral swelling [Unknown]
  - Unevaluable event [Unknown]
  - Extra dose administered [Unknown]
  - Haemorrhage [Unknown]
  - Asthma [Unknown]
  - Nasal congestion [Unknown]
  - Dyspnoea [Unknown]
  - Gastrooesophageal reflux disease [Unknown]
  - Rhinitis [Unknown]

NARRATIVE: CASE EVENT DATE: 201909
